FAERS Safety Report 13771169 (Version 1)
Quarter: 2017Q3

REPORT INFORMATION
  Report Type: Spontaneous
  Country: US (occurrence: US)
  Receive Date: 20170720
  Receipt Date: 20170720
  Transmission Date: 20171127
  Serious: Yes (Hospitalization)
  Sender: FDA-Public Use
  Company Number: None

PATIENT
  Age: 50 Year
  Sex: Female

DRUGS (6)
  1. MORPHINES SULFATE [Concomitant]
  2. ZOFRAN [Concomitant]
     Active Substance: ONDANSETRON HYDROCHLORIDE
  3. ALECENSA [Suspect]
     Active Substance: ALECTINIB HYDROCHLORIDE
     Indication: NEOPLASM MALIGNANT
     Dosage: ?          OTHER DOSE:MG;?
     Route: 048
  4. IPRATROPIUM BROMIDE. [Concomitant]
     Active Substance: IPRATROPIUM BROMIDE
  5. LOVENOX [Concomitant]
     Active Substance: ENOXAPARIN SODIUM
  6. ATIVAN [Concomitant]
     Active Substance: LORAZEPAM

REACTIONS (1)
  - Hospitalisation [None]
